FAERS Safety Report 24431807 (Version 2)
Quarter: 2024Q4

REPORT INFORMATION
  Report Type: Report from Study
  Country: US (occurrence: US)
  Receive Date: 20241014
  Receipt Date: 20241023
  Transmission Date: 20250115
  Serious: Yes (Other)
  Sender: Unknown Manufacturer
  Company Number: US-STALCOR-2024-AER-02204

PATIENT
  Age: 13 Year
  Sex: Female

DRUGS (6)
  1. PALFORZIA [Suspect]
     Active Substance: PEANUT
     Indication: Food allergy
     Dosage: IDE
     Route: 048
     Dates: start: 20240612
  2. PALFORZIA [Suspect]
     Active Substance: PEANUT
     Dosage: 20 MG: LVL 4
     Route: 048
     Dates: start: 20240910
  3. PALFORZIA [Suspect]
     Active Substance: PEANUT
     Dosage: DOSE AT ONSET OF REPORTED EVENT OF ANAPHYLAXIS
     Route: 048
     Dates: start: 20240927
  4. PALFORZIA [Suspect]
     Active Substance: PEANUT
     Indication: Food allergy
     Dosage: DOSE AT ONSET OF REPORTED EVENT OF ANAPHYLAXIS
     Route: 048
  5. DEXMETHYLPHENIDATE [Concomitant]
     Active Substance: DEXMETHYLPHENIDATE
     Indication: Product used for unknown indication
  6. FLUOXETINE [Concomitant]
     Active Substance: FLUOXETINE HYDROCHLORIDE
     Indication: Product used for unknown indication
     Dosage: 20MG/5ML

REACTIONS (5)
  - Eye pruritus [Unknown]
  - Anaphylactic reaction [Unknown]
  - Abdominal pain [Unknown]
  - Cough [Unknown]
  - Product dose omission issue [Unknown]

NARRATIVE: CASE EVENT DATE: 20240927
